FAERS Safety Report 14045999 (Version 1)
Quarter: 2017Q4

REPORT INFORMATION
  Report Type: Spontaneous
  Country: US (occurrence: US)
  Receive Date: 20171005
  Receipt Date: 20171005
  Transmission Date: 20180321
  Serious: Yes (Other)
  Sender: FDA-Public Use
  Company Number: US-BAYER-2017-188139

PATIENT
  Age: 49 Year
  Sex: Female

DRUGS (1)
  1. MIRENA [Suspect]
     Active Substance: LEVONORGESTREL
     Indication: CONTRACEPTION
     Dosage: 20 MCG/24HR, CONT
     Route: 015
     Dates: start: 20170708, end: 20170921

REACTIONS (4)
  - Bacterial vaginosis [None]
  - Sexually transmitted disease [None]
  - Gardnerella test positive [None]
  - Actinomycosis [None]

NARRATIVE: CASE EVENT DATE: 20170712
